FAERS Safety Report 5113615-2 (Version None)
Quarter: 2006Q3

REPORT INFORMATION
  Report Type: 
  Country: None (occurrence: None)
  Receive Date: 20060925
  Receipt Date: 20060711
  Transmission Date: 20061208
  Serious: Yes (Hospitalization)
  Sender: FDA-Public Use
  Company Number: US-AMGEN-STX186078

PATIENT
  Sex: Female

DRUGS (4)
  1. ENBREL [Suspect]
     Indication: PSORIATIC ARTHROPATHY
     Route: 058
     Dates: start: 20040826, end: 20060501
  2. ENBREL [Suspect]
     Indication: PSORIASIS
  3. CALCIPOTRIENE [Concomitant]
     Route: 061
  4. BETAMETHASONE DIPROPIONATE [Concomitant]
     Route: 061

REACTIONS (7)
  - ARTHRALGIA [None]
  - CONDITION AGGRAVATED [None]
  - HYSTERECTOMY [None]
  - MUSCULOSKELETAL STIFFNESS [None]
  - PAIN [None]
  - PSORIASIS [None]
  - RECTOCELE REPAIR [None]
